FAERS Safety Report 22083648 (Version 1)
Quarter: 2023Q1

REPORT INFORMATION
  Report Type: Spontaneous
  Country: US (occurrence: None)
  Receive Date: 20230309
  Receipt Date: 20230309
  Transmission Date: 20230418
  Serious: Yes (Other)
  Sender: FDA-Public Use
  Company Number: None

PATIENT
  Age: 30 Year
  Sex: Female

DRUGS (7)
  1. DEXTROAMPHET SACCHARAT, AMPHET ASPARTATE, DEXTROAMPHET SULFATE AND AMP [Suspect]
     Active Substance: AMPHETAMINE ASPARTATE\AMPHETAMINE SULFATE\DEXTROAMPHETAMINE SACCHARATE\DEXTROAMPHETAMINE SULFATE
     Indication: Attention deficit hyperactivity disorder
     Dates: start: 20230213, end: 20230218
  2. ADDERALL [Concomitant]
     Active Substance: AMPHETAMINE ASPARTATE\AMPHETAMINE SULFATE\DEXTROAMPHETAMINE SACCHARATE\DEXTROAMPHETAMINE SULFATE
  3. necon birth control [Concomitant]
  4. SUMATRIPTAN [Concomitant]
     Active Substance: SUMATRIPTAN
  5. Ritual women^s daily multivitamin [Concomitant]
  6. PROBIOTICS NOS [Concomitant]
     Active Substance: PROBIOTICS NOS
  7. vitamin C/zinc supplement [Concomitant]

REACTIONS (10)
  - Product substitution issue [None]
  - Drug ineffective [None]
  - Migraine [None]
  - Feeling abnormal [None]
  - Heart rate increased [None]
  - Insomnia [None]
  - Nausea [None]
  - Fatigue [None]
  - Heart rate variability decreased [None]
  - Therapy interrupted [None]

NARRATIVE: CASE EVENT DATE: 20230213
